FAERS Safety Report 16208550 (Version 33)
Quarter: 2023Q1

REPORT INFORMATION
  Report Type: Report from Study
  Country: GB (occurrence: GB)
  Receive Date: 20190417
  Receipt Date: 20230213
  Transmission Date: 20230417
  Serious: Yes (Death, Hospitalization, Congenital Anomaly, Other)
  Sender: FDA-Public Use
  Company Number: GB-MYLANLABS-2019M1036947

PATIENT
  Age: 4 Month
  Sex: Female
  Weight: 3.43 kg

DRUGS (18)
  1. ABACAVIR SULFATE\LAMIVUDINE [Suspect]
     Active Substance: ABACAVIR SULFATE\LAMIVUDINE
     Indication: HIV infection
     Dosage: 1 DOSAGE FORM, QD (1 DF (TABS/CAPS), QD)
     Route: 064
  2. ABACAVIR SULFATE\LAMIVUDINE [Suspect]
     Active Substance: ABACAVIR SULFATE\LAMIVUDINE
     Dosage: 1 DOSAGE FORM/1 TAB/CAP
     Route: 064
  3. ABACAVIR SULFATE\LAMIVUDINE [Suspect]
     Active Substance: ABACAVIR SULFATE\LAMIVUDINE
     Dosage: 1 DOSAGE FORM, QD, DAILY
     Route: 064
  4. DARUNAVIR [Suspect]
     Active Substance: DARUNAVIR
     Indication: HIV infection
     Dosage: 1 DOSAGE FORM, PARENTS DOSE: 1 TABLET/CAPSULE
     Route: 064
  5. DARUNAVIR [Suspect]
     Active Substance: DARUNAVIR
     Dosage: UNK (TABLET)
     Route: 064
  6. LAMIVUDINE [Suspect]
     Active Substance: LAMIVUDINE
     Indication: HIV infection
     Dosage: 1 DOSAGE FORM, QD (1DF, QD)
     Route: 064
  7. LAMIVUDINE [Suspect]
     Active Substance: LAMIVUDINE
     Dosage: 1 DOSAGE FORM, QD (1 DF, QD )
     Route: 064
  8. LAMIVUDINE [Suspect]
     Active Substance: LAMIVUDINE
     Dosage: 1 DOSAGE FORM, QD, (1 DOSAGE FORM, ONCE A DAY)
     Route: 064
  9. ABACAVIR [Suspect]
     Active Substance: ABACAVIR
     Indication: HIV infection
     Dosage: 1 DOSAGE FORM, QD (1 DOSAGE FORM, ONCE A DAY)
     Route: 064
  10. ABACAVIR [Suspect]
     Active Substance: ABACAVIR
     Dosage: 1 DOSAGE FORM, QD (1 DOSAGE FORM), 1 DF, QD
     Route: 064
  11. PREZCOBIX [Suspect]
     Active Substance: COBICISTAT\DARUNAVIR ETHANOLATE
     Indication: HIV infection
     Dosage: 1 DOSAGE FORM, QD (1 TABLET/CAPSULE, (1 DF)
     Route: 064
  12. PREZCOBIX [Suspect]
     Active Substance: COBICISTAT\DARUNAVIR ETHANOLATE
     Dosage: 1 DOSAGE FORM, QD, DOSE: 1 TABLET/CAPSULE
     Route: 064
  13. PREZCOBIX [Suspect]
     Active Substance: COBICISTAT\DARUNAVIR ETHANOLATE
     Dosage: 1 DOSAGE FORM, QD, (1 DOSAGE FORM, ONCE A DAY),TAB
     Route: 064
  14. RALTEGRAVIR POTASSIUM [Suspect]
     Active Substance: RALTEGRAVIR POTASSIUM
     Indication: Product used for unknown indication
     Dosage: UNK MATERNAL DOSE: 1200 OT
     Route: 064
  15. RALTEGRAVIR POTASSIUM [Suspect]
     Active Substance: RALTEGRAVIR POTASSIUM
     Dosage: UNK 1200
     Route: 064
  16. COBICISTAT [Suspect]
     Active Substance: COBICISTAT
     Indication: Product used for unknown indication
     Dosage: 1 DOSAGE FORM, QD, DOSE: 1 TABLET/CAPSULE, 1 DF
     Route: 064
  17. COBICISTAT\DARUNAVIR ETHANOLATE [Suspect]
     Active Substance: COBICISTAT\DARUNAVIR ETHANOLATE
     Indication: HIV infection
     Dosage: 1 DOSAGE FORM, QD  PARENT^S DOSE: TABLET/CAPSULE
     Route: 064
  18. COBICISTAT\DARUNAVIR ETHANOLATE [Suspect]
     Active Substance: COBICISTAT\DARUNAVIR ETHANOLATE
     Dosage: 1 DOSAGE FORM, QD(1 DF (TABLET/CAPSULE), QD )
     Route: 064

REACTIONS (9)
  - Foetal growth restriction [Fatal]
  - Brain injury [Fatal]
  - Foetal growth abnormality [Fatal]
  - Gastroschisis [Fatal]
  - Foetal exposure during pregnancy [Fatal]
  - Foetal death [Fatal]
  - Congenital intestinal malformation [Fatal]
  - Spina bifida [Fatal]
  - Hydrocephalus [Fatal]

NARRATIVE: CASE EVENT DATE: 20190107
